FAERS Safety Report 6097582-3 (Version None)
Quarter: 2009Q1

REPORT INFORMATION
  Report Type: 
  Country: None (occurrence: None)
  Receive Date: 20090227
  Receipt Date: 20081209
  Transmission Date: 20090719
  Serious: No
  Sender: FDA-Public Use
  Company Number: A0759609A

PATIENT
  Age: 60 Year
  Sex: Female

DRUGS (3)
  1. IMITREX [Suspect]
     Indication: MIGRAINE
     Dosage: .5ML THREE TIMES PER WEEK
     Route: 058
     Dates: start: 19921201
  2. LIPITOR [Concomitant]
  3. LEVOTHROID [Concomitant]

REACTIONS (1)
  - CONTUSION [None]
